FAERS Safety Report 14289907 (Version 1)
Quarter: 2017Q4

REPORT INFORMATION
  Report Type: Report from Study
  Country: US (occurrence: US)
  Receive Date: 20171214
  Receipt Date: 20171214
  Transmission Date: 20180321
  Serious: Yes (Death, Other)
  Sender: FDA-Public Use
  Company Number: US-GILEAD-2017-0309709

PATIENT
  Sex: Male

DRUGS (1)
  1. SOFOSBUVIR [Suspect]
     Active Substance: SOFOSBUVIR
     Indication: HEPATITIS C
     Route: 065

REACTIONS (3)
  - Neoplasm malignant [Unknown]
  - Suicidal ideation [Unknown]
  - Death [Fatal]

NARRATIVE: CASE EVENT DATE: 2009
